FAERS Safety Report 6992544 (Version 2)
Quarter: 2013Q4

REPORT INFORMATION
  Report Type: Report from Study
  Country: US (occurrence: US)
  Receive Date: 20090512
  Receipt Date: 20131223
  Transmission Date: 20140711
  Serious: Yes (Hospitalization, Other)
  Sender: FDA-Public Use
  Company Number: US-ALEXION-A200900189

PATIENT
  Age: 85 Year
  Sex: Male
  Weight: 67.12 kg

DRUGS (8)
  1. SOLIRIS [Suspect]
     Indication: PAROXYSMAL NOCTURNAL HAEMOGLOBINURIA
     Dosage: 600 MG, QW
     Route: 042
     Dates: start: 200810
  2. SOLIRIS [Suspect]
     Dosage: 900 MG, Q2W
     Route: 042
  3. CALCIUM [Concomitant]
  4. FLOMAX [Concomitant]
     Dosage: 0.4 MG, AT BEDTIME
  5. GLUCOSAMINE /CHOND [Concomitant]
  6. MULTIVITAMINS, OTHER COMBINATIONS [Concomitant]
  7. NORVASC [Concomitant]
     Dosage: 2.5 MG, QD
  8. VITAMIN B6 [Concomitant]

REACTIONS (15)
  - Fall [Recovered/Resolved]
  - Blood product transfusion dependent [Not Recovered/Not Resolved]
  - Syncope [Recovered/Resolved]
  - Arthritis bacterial [Recovering/Resolving]
  - Fungal infection [Recovering/Resolving]
  - Myelodysplastic syndrome [Not Recovered/Not Resolved]
  - Pyrexia [Recovering/Resolving]
  - Device failure [Recovered/Resolved]
  - Haemoglobinuria [Not Recovered/Not Resolved]
  - Feeling cold [Recovered/Resolved]
  - Monocytosis [Unknown]
  - Blood creatine phosphokinase increased [Unknown]
  - Haematocrit decreased [Recovered/Resolved]
  - Tremor [Recovered/Resolved]
  - Fatigue [Not Recovered/Not Resolved]
